FAERS Safety Report 7084466-7 (Version None)
Quarter: 2010Q4

REPORT INFORMATION
  Report Type: 
  Country: None (occurrence: None)
  Receive Date: 20101104
  Receipt Date: 20101029
  Transmission Date: 20110411
  Serious: Yes (Death, Hospitalization)
  Sender: FDA-Public Use
  Company Number: US-ELI_LILLY_AND_COMPANY-US201010007284

PATIENT
  Sex: Female

DRUGS (3)
  1. ALIMTA [Suspect]
     Indication: ADENOCARCINOMA
     Dosage: 500 MG/M2, UNK
     Dates: start: 20100527, end: 20100527
  2. LOMOTIL [Concomitant]
  3. ANTIEMETICS AND ANTINAUSEANTS [Concomitant]

REACTIONS (11)
  - CONFUSIONAL STATE [None]
  - DEATH [None]
  - DIARRHOEA [None]
  - DYSPNOEA [None]
  - FATIGUE [None]
  - GENERAL PHYSICAL HEALTH DETERIORATION [None]
  - HYPERSENSITIVITY [None]
  - HYPOPHAGIA [None]
  - LABORATORY TEST ABNORMAL [None]
  - MUCOSAL INFLAMMATION [None]
  - NAUSEA [None]
